FAERS Safety Report 5023998-X (Version None)
Quarter: 2006Q2

REPORT INFORMATION
  Report Type: 
  Country: None (occurrence: None)
  Receive Date: 20060607
  Receipt Date: 20060525
  Transmission Date: 20061013
  Serious: Yes (Hospitalization)
  Sender: FDA-Public Use
  Company Number: 200613586BWH

PATIENT
  Age: 60 Year
  Sex: Male
  Weight: 63.9572 kg

DRUGS (8)
  1. SORAFENIB [Suspect]
     Indication: METASTATIC RENAL CELL CARCINOMA
     Dosage: 400 MG, BID, ORAL
     Route: 048
     Dates: start: 20050929
  2. PRANDIN [Concomitant]
  3. GLIPIZIDE [Concomitant]
  4. MEGESTROL [Concomitant]
  5. RESTORIL [Concomitant]
  6. ARANESP [Concomitant]
  7. NORVASC [Concomitant]
  8. TENORMIN [Concomitant]

REACTIONS (8)
  - ASTHENIA [None]
  - BLOOD ALKALINE PHOSPHATASE INCREASED [None]
  - BLOOD CALCIUM INCREASED [None]
  - FLANK PAIN [None]
  - HAEMOGLOBIN DECREASED [None]
  - LETHARGY [None]
  - PLEURAL EFFUSION [None]
  - WHITE BLOOD CELL COUNT INCREASED [None]
